FAERS Safety Report 7730834-7 (Version None)
Quarter: 2011Q3

REPORT INFORMATION
  Report Type: 
  Country: None (occurrence: None)
  Receive Date: 20110906
  Receipt Date: 20110831
  Transmission Date: 20111222
  Serious: No
  Sender: FDA-Public Use
  Company Number: US-PFIZER INC-2011152647

PATIENT
  Sex: Female

DRUGS (4)
  1. PREMPRO [Suspect]
     Dosage: 2.5 MG, ALTERNATE DAY
     Dates: start: 20110401, end: 20110624
  2. PREMPRO [Suspect]
     Dosage: 2.5 MG, 1X/DAY
     Dates: start: 20101201
  3. PREMPRO [Suspect]
     Dosage: UNK
     Dates: start: 20110106
  4. PREMPRO [Suspect]
     Indication: MENOPAUSE
     Dosage: 2.5 MG, 1X/DAY
     Route: 048
     Dates: start: 20060101

REACTIONS (3)
  - IRRITABILITY [None]
  - HOT FLUSH [None]
  - INAPPROPRIATE SCHEDULE OF DRUG ADMINISTRATION [None]
